FAERS Safety Report 5929247-X (Version None)
Quarter: 2008Q4

REPORT INFORMATION
  Report Type: 
  Country: None (occurrence: None)
  Receive Date: 20081020
  Receipt Date: 20081008
  Transmission Date: 20090506
  Serious: Yes (Other)
  Sender: FDA-Public Use
  Company Number: 2008AP002698

PATIENT
  Age: 66 Year
  Sex: Male

DRUGS (10)
  1. AMLODIPINE BESYLATE [Suspect]
  2. PAROXETINE HCL [Suspect]
     Indication: DRUG USE FOR UNKNOWN INDICATION
  3. CANDESARTAN CILEXETIL [Suspect]
  4. HUMALOG [Suspect]
  5. METFORMIN HCL [Suspect]
  6. NIZATIDINE [Suspect]
  7. TEMAZEPAM [Suspect]
  8. TRAZODONE HCL [Suspect]
  9. VALIUM [Suspect]
  10. ASPIRIN [Suspect]

REACTIONS (1)
  - DIABETES MELLITUS INADEQUATE CONTROL [None]
